FAERS Safety Report 20586368 (Version 1)
Quarter: 2022Q1

REPORT INFORMATION
  Report Type: Report from Study
  Country: FR (occurrence: None)
  Receive Date: 20220313
  Receipt Date: 20220313
  Transmission Date: 20220423
  Serious: Yes (Hospitalization)
  Sender: FDA-Public Use
  Company Number: FR-ROCHE-3014321

PATIENT
  Age: 64 Year
  Sex: Female
  Weight: 60 kg

DRUGS (4)
  1. OBINUTUZUMAB [Suspect]
     Active Substance: OBINUTUZUMAB
     Indication: Mantle cell lymphoma
     Route: 042
     Dates: start: 20170629, end: 20201127
  2. DHACOPAN [Concomitant]
     Indication: Lymphoma
     Dates: start: 20170629, end: 20170907
  3. BEAM [Concomitant]
     Active Substance: SODIUM FLUORIDE
     Indication: Lymphoma
     Dates: start: 20171009, end: 20171009
  4. IMMUNOGLOBULINS [Concomitant]
     Indication: Hypogammaglobulinaemia
     Dates: start: 20191223, end: 20210607

REACTIONS (4)
  - COVID-19 [Not Recovered/Not Resolved]
  - Acute sinusitis [Unknown]
  - General physical health deterioration [Unknown]
  - Headache [Unknown]

NARRATIVE: CASE EVENT DATE: 20220114
